APPROVED DRUG PRODUCT: TESTOSTERONE
Active Ingredient: TESTOSTERONE
Strength: 25MG/2.5GM PACKET
Dosage Form/Route: GEL;TRANSDERMAL
Application: N203098 | Product #002
Applicant: PERRIGO ISRAEL PHARMACEUTICALS LTD
Approved: Jan 31, 2013 | RLD: No | RS: No | Type: DISCN